FAERS Safety Report 21047892 (Version 1)
Quarter: 2022Q3

REPORT INFORMATION
  Report Type: Spontaneous
  Country: US (occurrence: None)
  Receive Date: 20220705
  Receipt Date: 20220705
  Transmission Date: 20221027
  Serious: No
  Sender: FDA-Public Use
  Company Number: None

PATIENT
  Age: 49 Year
  Sex: Male
  Weight: 79.2 kg

DRUGS (14)
  1. DEXTROAMPHET SACCHARAT, AMPHET ASPARTATE, DEXTROAMPHET SULFATE AND AMP [Suspect]
     Active Substance: AMPHETAMINE ASPARTATE\AMPHETAMINE SULFATE\DEXTROAMPHETAMINE SACCHARATE\DEXTROAMPHETAMINE SULFATE
     Indication: Attention deficit hyperactivity disorder
     Dosage: OTHER FREQUENCY : 2 TO 3 DAILY;?
     Route: 048
  2. ADDERALL [Concomitant]
     Active Substance: AMPHETAMINE ASPARTATE\AMPHETAMINE SULFATE\DEXTROAMPHETAMINE SACCHARATE\DEXTROAMPHETAMINE SULFATE
  3. SIMVASTATIN [Concomitant]
     Active Substance: SIMVASTATIN
  4. JARDIANCE [Concomitant]
     Active Substance: EMPAGLIFLOZIN
  5. CARVEDILOL [Concomitant]
     Active Substance: CARVEDILOL
  6. ASPIRIN [Concomitant]
     Active Substance: ASPIRIN
  7. Lavazza [Concomitant]
  8. PROBIOTICS NOS [Concomitant]
     Active Substance: PROBIOTICS NOS
  9. CALCIUM [Concomitant]
     Active Substance: CALCIUM
  10. , B complex [Concomitant]
  11. ZINC [Concomitant]
     Active Substance: ZINC
  12. MAGNESIUM [Concomitant]
     Active Substance: MAGNESIUM
  13. vitamin C [Concomitant]
  14. multi-vitamin [Concomitant]

REACTIONS (9)
  - Product substitution issue [None]
  - Drug effect less than expected [None]
  - Asthenia [None]
  - Disturbance in attention [None]
  - Apathy [None]
  - Headache [None]
  - Impaired quality of life [None]
  - Anxiety [None]
  - Frustration tolerance decreased [None]

NARRATIVE: CASE EVENT DATE: 20220701
